FAERS Safety Report 11646651 (Version 1)
Quarter: 2015Q4

REPORT INFORMATION
  Report Type: Spontaneous
  Country: US (occurrence: US)
  Receive Date: 20151020
  Receipt Date: 20151020
  Transmission Date: 20160304
  Serious: No
  Sender: FDA-Public Use
  Company Number: US-ROCHE-ITM201412IM008232

PATIENT
  Age: 79 Year
  Sex: Male

DRUGS (3)
  1. ESBRIET [Suspect]
     Active Substance: PIRFENIDONE
     Route: 048
     Dates: start: 20141231
  2. ESBRIET [Suspect]
     Active Substance: PIRFENIDONE
     Indication: IDIOPATHIC PULMONARY FIBROSIS
     Dosage: 801 MG
     Route: 048
     Dates: start: 20141213, end: 20141219
  3. ESBRIET [Suspect]
     Active Substance: PIRFENIDONE
     Dosage: 6 CAPSULES (TWO CAPSULES THREE TIMES A DAY)
     Route: 048
     Dates: start: 20141220

REACTIONS (2)
  - Nausea [Not Recovered/Not Resolved]
  - Diarrhoea [Recovered/Resolved with Sequelae]

NARRATIVE: CASE EVENT DATE: 20141213
